FAERS Safety Report 4296720-2 (Version None)
Quarter: 2004Q1

REPORT INFORMATION
  Report Type: 
  Country: None (occurrence: None)
  Receive Date: 20040126
  Receipt Date: 20030825
  Transmission Date: 20041129
  Serious: No
  Sender: FDA-Public Use
  Company Number: USA030742082

PATIENT
  Age: 13 Year
  Sex: Male
  Weight: 78 kg

DRUGS (3)
  1. STRATTERA [Suspect]
     Indication: ATTENTION DEFICIT/HYPERACTIVITY DISORDER
     Dosage: 80 MG/IN THE MORNING
     Dates: start: 20030301
  2. METADATE CD [Concomitant]
  3. TENEX [Concomitant]

REACTIONS (1)
  - ERECTION INCREASED [None]
